FAERS Safety Report 7731405-9 (Version None)
Quarter: 2011Q3

REPORT INFORMATION
  Report Type: 
  Country: None (occurrence: None)
  Receive Date: 20110906
  Receipt Date: 20110531
  Transmission Date: 20111222
  Serious: No
  Sender: FDA-Public Use
  Company Number: US-AMGEN-USASP2011028014

PATIENT
  Sex: Female

DRUGS (10)
  1. PROLIA [Suspect]
     Indication: OSTEOPOROSIS POSTMENOPAUSAL
     Dosage: UNK
     Dates: start: 20110404
  2. CALCIUM CARBONATE [Concomitant]
     Dosage: 1 MG, QD
  3. GABAPENTIN [Concomitant]
     Dosage: 1 MG, QD
  4. MULTIVITAMIN                       /00097801/ [Concomitant]
  5. MELOXICAM [Concomitant]
     Dosage: 1 MG, QD
  6. CLONIDINE [Concomitant]
  7. VITAMIN D [Concomitant]
     Dosage: 1 IU, QD
  8. NIFEDIPINE [Concomitant]
     Dosage: 1 MG, QD
  9. FOLIC ACID [Concomitant]
     Dosage: 1 MG, QD
  10. TYLENOL (CAPLET) [Concomitant]

REACTIONS (1)
  - BONE PAIN [None]
